FAERS Safety Report 8062636-9 (Version None)
Quarter: 2012Q1

REPORT INFORMATION
  Report Type: 
  Country: None (occurrence: None)
  Receive Date: 20120117
  Receipt Date: 20120106
  Transmission Date: 20120608
  Serious: Yes (Other)
  Sender: FDA-Public Use
  Company Number: 2012MA000454

PATIENT
  Age: 64 Year
  Sex: Male

DRUGS (8)
  1. ADIZEM-XL [Concomitant]
  2. SILDENAFIL [Concomitant]
  3. IRBESARTAN [Concomitant]
  4. HUMULIN S (INSULIN HUMAN) [Suspect]
  5. LANTUS [Suspect]
  6. DOXAZOSIN MESYLATE [Suspect]
     Indication: HYPERTENSION
     Dosage: 4 MG;PO
     Route: 048
  7. LANSOPRAZOLE [Concomitant]
  8. ASPIRIN [Concomitant]

REACTIONS (1)
  - HYPOGLYCAEMIA [None]
